FAERS Safety Report 6537733-7 (Version None)
Quarter: 2010Q1

REPORT INFORMATION
  Report Type: 
  Country: None (occurrence: None)
  Receive Date: 20100112
  Receipt Date: 20100112
  Transmission Date: 20100710
  Serious: Yes (Hospitalization)
  Sender: FDA-Public Use
  Company Number: None

PATIENT
  Sex: Female
  Weight: 116.8 kg

DRUGS (2)
  1. CISPLATIN [Suspect]
     Dosage: 350 MG
  2. ETOPOSIDE [Suspect]
     Dosage: 1320 MG

REACTIONS (8)
  - ABDOMINAL PAIN UPPER [None]
  - ANAEMIA [None]
  - DECREASED APPETITE [None]
  - DYSPHAGIA [None]
  - DYSPNOEA [None]
  - FATIGUE [None]
  - NEUTROPENIA [None]
  - OESOPHAGITIS [None]
